FAERS Safety Report 25003426 (Version 1)
Quarter: 2025Q1

REPORT INFORMATION
  Report Type: Other
  Country: TR (occurrence: TR)
  Receive Date: 20250224
  Receipt Date: 20250224
  Transmission Date: 20250409
  Serious: Yes (Hospitalization)
  Sender: ANI
  Company Number: TR-ANIPHARMA-015684

PATIENT
  Age: 52 Year
  Sex: Female

DRUGS (2)
  1. CIPROFLOXACIN [Suspect]
     Active Substance: CIPROFLOXACIN
     Indication: Urinary tract infection
  2. LITHIUM [Concomitant]
     Active Substance: LITHIUM
     Indication: Bipolar disorder

REACTIONS (1)
  - Mania [Recovering/Resolving]
